FAERS Safety Report 8017484-2 (Version None)
Quarter: 2011Q4

REPORT INFORMATION
  Report Type: 
  Country: None (occurrence: None)
  Receive Date: 20111228
  Receipt Date: 20111228
  Transmission Date: 20120403
  Serious: Yes (Other)
  Sender: FDA-Public Use
  Company Number: None

PATIENT
  Sex: Female
  Weight: 68.0396 kg

DRUGS (6)
  1. PHENERGAN [Concomitant]
  2. PREMARIN [Concomitant]
  3. BENAZEPRIL HCL AND HYDROCHLOROTHIAZIDE [Suspect]
  4. DICLOFENAC [Concomitant]
  5. PAROXETINE [Suspect]
     Indication: DEPRESSION
     Dosage: 30MG 1 DAY PO
     Route: 048
     Dates: start: 20110901, end: 20111115
  6. LEXAPRO [Suspect]
     Indication: DEPRESSION
     Dosage: 10MG 1 DAY PO
     Route: 048
     Dates: end: 20110101

REACTIONS (7)
  - DEPRESSION [None]
  - SUICIDAL IDEATION [None]
  - CONDITION AGGRAVATED [None]
  - ANXIETY [None]
  - BLOOD PRESSURE INCREASED [None]
  - CONFUSIONAL STATE [None]
  - INSOMNIA [None]
